FAERS Safety Report 7770878-2 (Version None)
Quarter: 2011Q3

REPORT INFORMATION
  Report Type: 
  Country: None (occurrence: None)
  Receive Date: 20110922
  Receipt Date: 20110301
  Transmission Date: 20111222
  Serious: No
  Sender: FDA-Public Use
  Company Number: US-ASTRAZENECA-2011SE11150

PATIENT
  Age: 20277 Day
  Sex: Male
  Weight: 124.7 kg

DRUGS (11)
  1. SERZONE [Concomitant]
     Dates: start: 20040517
  2. TRAZODONE HYDROCHLORIDE [Concomitant]
     Dates: start: 20040517
  3. WELLBUTRIN XL [Concomitant]
     Dosage: 150 TO 200 MG
     Route: 048
     Dates: start: 20050125
  4. COZAAR [Concomitant]
     Dates: start: 20040209
  5. SEROQUEL [Suspect]
     Dosage: 25 TO 100 MG
     Route: 048
     Dates: start: 20050125
  6. BACTRIM [Concomitant]
     Dates: start: 20050125
  7. ZYRTEC [Concomitant]
     Dates: start: 20071116
  8. DIAZEPAM [Concomitant]
     Dosage: 5 TO 20 MG
     Dates: start: 20040209
  9. PROPRANOLOL [Concomitant]
     Dates: start: 20040517
  10. REMERON [Concomitant]
     Dates: start: 20040517
  11. ENTEX CAP [Concomitant]
     Dates: start: 20050524

REACTIONS (9)
  - ACUTE SINUSITIS [None]
  - EAR ABRASION [None]
  - RHINITIS ALLERGIC [None]
  - HYPERTRIGLYCERIDAEMIA [None]
  - TYPE 2 DIABETES MELLITUS [None]
  - SINUSITIS [None]
  - WEIGHT INCREASED [None]
  - OTITIS EXTERNA [None]
  - BRONCHITIS [None]
